FAERS Safety Report 10749931 (Version 3)
Quarter: 2015Q1

REPORT INFORMATION
  Report Type: Report from Study
  Country: DE (occurrence: DE)
  Receive Date: 20150129
  Receipt Date: 20150130
  Transmission Date: 20150721
  Serious: Yes (Hospitalization)
  Sender: FDA-Public Use
  Company Number: DE-ABBVIE-15P-062-1339293-00

PATIENT
  Sex: Male

DRUGS (1)
  1. DUODOPA [Suspect]
     Active Substance: CARBIDOPA\LEVODOPA
     Indication: PARKINSON^S DISEASE
     Dosage: MD 2.4 ML CRD 3.6 ML/H CRN 1.6 ML/H ED 2.0 ML
     Route: 050
     Dates: start: 20070130

REACTIONS (1)
  - Device dislocation [Not Recovered/Not Resolved]
